FAERS Safety Report 7077608-0 (Version None)
Quarter: 2010Q4

REPORT INFORMATION
  Report Type: 
  Country: None (occurrence: None)
  Receive Date: 20101021
  Receipt Date: 20101006
  Transmission Date: 20110411
  Serious: Yes (Life-Threatening, Hospitalization)
  Sender: FDA-Public Use
  Company Number: GER/UKI/10/0016268

PATIENT
  Age: 81 Year
  Sex: Male

DRUGS (10)
  1. CLOPIDOGREL [Suspect]
     Indication: ANGINA PECTORIS
     Dosage: 75 MG, ORAL
     Route: 048
     Dates: start: 20100906, end: 20100924
  2. ASPIRIN [Concomitant]
  3. BENDROFLUMETHIAZIDE(BENDROFLUMETHIAZIDE) [Concomitant]
  4. BISOPROLOL FUMARATE [Concomitant]
  5. GLYCERYL TRINITRATE (GLYCERYL TRINITRATE) [Concomitant]
  6. LACTULOSE [Concomitant]
  7. LANSOPRAZOLE [Concomitant]
  8. LISINOPRIL [Concomitant]
  9. SENNA (SENNA ALEXANDRINA) [Concomitant]
  10. SIMVASTATIN [Concomitant]

REACTIONS (4)
  - ANGIOEDEMA [None]
  - ERYTHEMA [None]
  - OEDEMA PERIPHERAL [None]
  - RASH GENERALISED [None]
